FAERS Safety Report 4904397-5 (Version None)
Quarter: 2006Q1

REPORT INFORMATION
  Report Type: 
  Country: None (occurrence: None)
  Receive Date: 20060208
  Receipt Date: 20050831
  Transmission Date: 20060701
  Serious: No
  Sender: FDA-Public Use
  Company Number: US-GLAXOSMITHKLINE-A0572547A

PATIENT
  Age: 71 Year
  Sex: Female

DRUGS (8)
  1. PAROXETINE HCL [Suspect]
     Indication: ANXIETY
     Dosage: 20MG AT NIGHT
     Route: 048
     Dates: start: 20050830
  2. MORPHINE [Concomitant]
     Route: 065
  3. NEURONTIN [Concomitant]
  4. BENICAR [Concomitant]
  5. GEMFIBROZIL [Concomitant]
     Route: 065
  6. ZOCOR [Concomitant]
  7. MULTIVITAMIN [Concomitant]
  8. ASPIRIN [Concomitant]

REACTIONS (1)
  - DIZZINESS [None]
